FAERS Safety Report 12092133 (Version 3)
Quarter: 2017Q2

REPORT INFORMATION
  Report Type: Report from Study
  Country: NL (occurrence: NL)
  Receive Date: 20160219
  Receipt Date: 20170629
  Transmission Date: 20170829
  Serious: Yes (Other)
  Sender: FDA-Public Use
  Company Number: NL-ROCHE-1710641

PATIENT

DRUGS (4)
  1. BEVACIZUMAB [Suspect]
     Active Substance: BEVACIZUMAB
     Indication: RETINAL HAEMORRHAGE
     Dosage: 1.25 MG IN 0.05 ML
     Route: 050
  2. PERFLUOROPROPANE [Suspect]
     Active Substance: PERFLUTREN
     Indication: RETINAL HAEMORRHAGE
     Route: 050
  3. ALTEPLASE [Suspect]
     Active Substance: ALTEPLASE
     Indication: RETINAL HAEMORRHAGE
     Dosage: 0.25 UG IN 0.1 ML
     Route: 050
  4. ALTEPLASE [Suspect]
     Active Substance: ALTEPLASE
     Dosage: 0.25 UG IN 0.1 ML
     Route: 050

REACTIONS (5)
  - Optic ischaemic neuropathy [Unknown]
  - Retinal detachment [Unknown]
  - Vitreous haemorrhage [Unknown]
  - Intraocular pressure increased [Unknown]
  - Retinal haemorrhage [Unknown]
